FAERS Safety Report 4723328-4 (Version None)
Quarter: 2005Q3

REPORT INFORMATION
  Report Type: 
  Country: None (occurrence: None)
  Receive Date: 20050725
  Receipt Date: 20050715
  Transmission Date: 20060218
  Serious: Yes (Other)
  Sender: FDA-Public Use
  Company Number: CH-SOLVAY-00305002290

PATIENT
  Age: 24 Year
  Sex: Female

DRUGS (4)
  1. FLOXYFRAL [Suspect]
     Indication: ANXIETY
     Dosage: DAILY DOSE:  UNKNOWN
     Route: 065
  2. CLONAZEPAM [Suspect]
     Indication: ANXIETY
     Dosage: DAILY DOSE:  UNKNOWN
     Route: 065
  3. BIAXIN [Suspect]
     Indication: PNEUMONIA VIRAL
     Dosage: DAILY DOSE:  UNKNOWN
     Route: 048
     Dates: start: 20040205, end: 20040214
  4. AMOXICILLIN AND CLAVULANATE POTASSIUM [Suspect]
     Indication: PNEUMONIA VIRAL
     Dosage: DAILY DOSE:  UNKNOWN
     Route: 048
     Dates: start: 20040205, end: 20040214

REACTIONS (3)
  - ABORTION SPONTANEOUS [None]
  - DRUG EXPOSURE DURING PREGNANCY [None]
  - PNEUMONIA [None]
